FAERS Safety Report 8236604-8 (Version None)
Quarter: 2012Q1

REPORT INFORMATION
  Report Type: 
  Country: None (occurrence: None)
  Receive Date: 20120309
  Receipt Date: 20110524
  Transmission Date: 20120608
  Serious: Yes (Other)
  Sender: FDA-Public Use
  Company Number: PHHY2011US45365

PATIENT
  Sex: Female

DRUGS (1)
  1. EXTAVIA [Suspect]
     Dosage: SUBCUTANEOUS
     Route: 058

REACTIONS (4)
  - MULTIPLE SCLEROSIS RELAPSE [None]
  - INJECTION SITE MASS [None]
  - INJECTION SITE PARAESTHESIA [None]
  - INJECTION SITE PAIN [None]
